FAERS Safety Report 6912413-4 (Version None)
Quarter: 2010Q3

REPORT INFORMATION
  Report Type: 
  Country: None (occurrence: None)
  Receive Date: 20100806
  Receipt Date: 20080404
  Transmission Date: 20110219
  Serious: No
  Sender: FDA-Public Use
  Company Number: US-PFIZER INC-2008029882

PATIENT
  Sex: Female
  Weight: 99.545 kg

DRUGS (3)
  1. DETROL LA [Suspect]
     Indication: BLADDER DISORDER
     Route: 048
     Dates: start: 20071119, end: 20071219
  2. MULTIPLE VITAMINS [Concomitant]
  3. DIURETICS [Concomitant]

REACTIONS (1)
  - CONSTIPATION [None]
